FAERS Safety Report 14825177 (Version 1)
Quarter: 2018Q2

REPORT INFORMATION
  Report Type: Spontaneous
  Country: DE (occurrence: DE)
  Receive Date: 20180430
  Receipt Date: 20180430
  Transmission Date: 20180711
  Serious: Yes (Death, Hospitalization, Other)
  Sender: FDA-Public Use
  Company Number: DE-WEST-WARD PHARMACEUTICALS CORP.-DE-H14001-18-01785

PATIENT
  Age: 80 Year
  Sex: Male
  Weight: 67 kg

DRUGS (28)
  1. PANTOZOL [Concomitant]
     Active Substance: PANTOPRAZOLE SODIUM
     Indication: GASTROOESOPHAGEAL REFLUX DISEASE
     Route: 048
     Dates: start: 20170119, end: 20170214
  2. TARGIN [Concomitant]
     Active Substance: NALOXONE HYDROCHLORIDE\OXYCODONE HYDROCHLORIDE
     Indication: CHEST PAIN
     Dosage: 40 MILLIGRAM
     Route: 048
     Dates: start: 20170116
  3. CARBOPLATIN. [Suspect]
     Active Substance: CARBOPLATIN
     Indication: NON-SMALL CELL LUNG CANCER
     Route: 041
     Dates: start: 20170201, end: 20170222
  4. ABRAXANE [Suspect]
     Active Substance: PACLITAXEL
     Indication: NON-SMALL CELL LUNG CANCER
     Dosage: 100 MILLIGRAM/SQ. METER
     Route: 041
     Dates: start: 20170201, end: 20170201
  5. RINGERS SOLUTION [Concomitant]
     Active Substance: CALCIUM CHLORIDE\POTASSIUM CHLORIDE\SODIUM CHLORIDE
     Indication: PROPHYLAXIS
     Route: 048
     Dates: start: 20170216
  6. EMEND [Concomitant]
     Active Substance: APREPITANT
     Indication: PRODUCT USED FOR UNKNOWN INDICATION
     Dosage: 125 MILLIGRAM
     Route: 048
     Dates: start: 20170222, end: 20170301
  7. DULCOLAX NOS [Concomitant]
     Active Substance: BISACODYL OR DOCUSATE SODIUM
     Indication: PROPHYLAXIS
     Route: 054
     Dates: start: 20170206
  8. NEPRESOL [Concomitant]
     Indication: HYPOTENSION
     Dosage: 25 MILLIGRAM
     Route: 048
  9. CARBOPLATIN. [Suspect]
     Active Substance: CARBOPLATIN
     Indication: PRODUCT USED FOR UNKNOWN INDICATION
     Dosage: 250MG
     Route: 041
     Dates: start: 20170201, end: 20170315
  10. FENISTIL [Concomitant]
     Active Substance: DIMETHINDENE
     Indication: PROPHYLAXIS
     Route: 041
     Dates: start: 20170201
  11. DECORTIN [Concomitant]
     Active Substance: PREDNISONE
     Indication: PROPHYLAXIS
     Dosage: 100 MILLIGRAM
     Route: 041
     Dates: start: 20170201, end: 20170308
  12. SPIRIVA [Concomitant]
     Active Substance: TIOTROPIUM BROMIDE MONOHYDRATE
     Indication: CHRONIC OBSTRUCTIVE PULMONARY DISEASE
     Dosage: 18 MICROGRAM
     Route: 055
  13. LASIX [Concomitant]
     Active Substance: FUROSEMIDE
     Indication: OEDEMA PERIPHERAL
     Dosage: 40 MILLIGRAM
     Route: 048
     Dates: start: 20170301
  14. NOVALGIN (ACETAMINOPHEN (+) CAFFEINE (+) PROPYPHENAZONE) [Concomitant]
     Active Substance: ACETAMINOPHEN\CAFFEINE\PROPYPHENAZONE
     Indication: CHEST PAIN
     Dosage: 4 GRAM
     Route: 048
     Dates: start: 20170116
  15. MOVICOL [Concomitant]
     Active Substance: POLYETHYLENE GLYCOL 3350\POTASSIUM CHLORIDE\SODIUM BICARBONATE\SODIUM CHLORIDE
     Indication: PROPHYLAXIS
     Dosage: 13.81 MILLIGRAM
     Route: 048
     Dates: start: 201701, end: 20170205
  16. DEXAMETHASONE. [Concomitant]
     Active Substance: DEXAMETHASONE
     Indication: CHRONIC OBSTRUCTIVE PULMONARY DISEASE
     Route: 048
  17. PANTOZOL [Concomitant]
     Active Substance: PANTOPRAZOLE SODIUM
     Indication: PROPHYLAXIS
     Dosage: 40 MILLIGRAM
     Route: 048
     Dates: start: 20170215
  18. AMITRIPTYLINE [Concomitant]
     Active Substance: AMITRIPTYLINE
     Indication: CHEST PAIN
     Dosage: 25 MILLIGRAM
     Route: 048
     Dates: start: 20170116
  19. ALOXI [Concomitant]
     Active Substance: PALONOSETRON HYDROCHLORIDE
     Indication: PROPHYLAXIS
     Dosage: 250 MILLIGRAM
     Route: 030
     Dates: start: 20170215
  20. ENALAPRIL-RATIOPHARM [Concomitant]
     Active Substance: ENALAPRIL
     Indication: HYPOTENSION
     Dosage: 20 MILLIGRAM
     Route: 048
  21. PASPERTIN [Concomitant]
     Indication: PROPHYLAXIS
     Dosage: 10 MILLIGRAM
     Route: 041
     Dates: start: 20170201
  22. ABRAXANE [Suspect]
     Active Substance: PACLITAXEL
     Indication: PRODUCT USED FOR UNKNOWN INDICATION
     Dosage: 100 MILLIGRAM/SQ. METER
     Route: 041
     Dates: end: 20170308
  23. SEVREDOL [Concomitant]
     Active Substance: MORPHINE
     Indication: CHEST PAIN
     Route: 048
     Dates: start: 20170116
  24. RINGERS SOLUTION [Concomitant]
     Active Substance: CALCIUM CHLORIDE\POTASSIUM CHLORIDE\SODIUM CHLORIDE
     Indication: GASTROOESOPHAGEAL REFLUX DISEASE
     Dosage: ()
     Route: 065
  25. KEVATRIL [Concomitant]
     Active Substance: GRANISETRON HYDROCHLORIDE
     Indication: PROPHYLAXIS
     Dosage: 3 MILLIGRAM
     Route: 041
     Dates: start: 20170201, end: 20170201
  26. EMEND [Concomitant]
     Active Substance: APREPITANT
     Indication: PROPHYLAXIS
     Route: 048
     Dates: start: 20170222, end: 20170301
  27. RANITIC [Concomitant]
     Active Substance: RANITIDINE HYDROCHLORIDE
     Indication: PROPHYLAXIS
     Route: 041
     Dates: start: 20170201
  28. LYRICA [Concomitant]
     Active Substance: PREGABALIN
     Indication: CHEST PAIN
     Dosage: 150 MILLIGRAM
     Route: 048
     Dates: start: 201701

REACTIONS (5)
  - Non-small cell lung cancer [Fatal]
  - Off label use [Unknown]
  - Nausea [Not Recovered/Not Resolved]
  - Constipation [Recovered/Resolved]
  - Vomiting [Not Recovered/Not Resolved]

NARRATIVE: CASE EVENT DATE: 20170204
